FAERS Safety Report 24233122 (Version 1)
Quarter: 2024Q3

REPORT INFORMATION
  Report Type: Spontaneous
  Country: US (occurrence: None)
  Receive Date: 20240820
  Receipt Date: 20240820
  Transmission Date: 20241016
  Serious: Yes (Hospitalization)
  Sender: Public
  Company Number: None

PATIENT
  Sex: Female

DRUGS (4)
  1. WINREVAIR [Suspect]
     Active Substance: SOTATERCEPT-CSRK
     Indication: Pulmonary arterial hypertension
     Dosage: FREQUENCY : EVERY THREE WEEKS;?
     Route: 058
     Dates: start: 202405
  2. REMODULIN MDV [Concomitant]
  3. SILDENAFIL CITRATE [Concomitant]
     Active Substance: SILDENAFIL CITRATE
  4. OPSUMIT [Concomitant]
     Active Substance: MACITENTAN

REACTIONS (1)
  - Gastrointestinal haemorrhage [None]
